FAERS Safety Report 4843152-1 (Version None)
Quarter: 2005Q4

REPORT INFORMATION
  Report Type: 
  Country: None (occurrence: None)
  Receive Date: 20051201
  Receipt Date: 20051121
  Transmission Date: 20060501
  Serious: Yes (Congenital Anomaly)
  Sender: FDA-Public Use
  Company Number: GB-ABBOTT-05P-167-0317778-00

PATIENT
  Sex: Male

DRUGS (1)
  1. EPILIM [Suspect]
     Indication: DRUG EXPOSURE DURING PREGNANCY

REACTIONS (10)
  - ARTHROPATHY [None]
  - AUTISM [None]
  - DRUG EXPOSURE DURING PREGNANCY [None]
  - FACIAL DYSMORPHISM [None]
  - FOETAL VALPROATE SYNDROME [None]
  - HEARING IMPAIRED [None]
  - HYPOSPADIAS [None]
  - HYPOTONIA [None]
  - SPEECH DISORDER DEVELOPMENTAL [None]
  - TOE DEFORMITY [None]
